FAERS Safety Report 6420940-1 (Version None)
Quarter: 2009Q4

REPORT INFORMATION
  Report Type: 
  Country: None (occurrence: None)
  Receive Date: 20091030
  Receipt Date: 20091022
  Transmission Date: 20100525
  Serious: Yes (Hospitalization, Other)
  Sender: FDA-Public Use
  Company Number: US-CUBIST-2009S1000339

PATIENT
  Age: 71 Year
  Sex: Female
  Weight: 88.9 kg

DRUGS (6)
  1. CUBICIN [Suspect]
     Indication: CELLULITIS
     Route: 042
     Dates: start: 20090605, end: 20090627
  2. SYNTHROID [Concomitant]
     Indication: DRUG USE FOR UNKNOWN INDICATION
  3. DILTIAZEM [Concomitant]
     Indication: DRUG USE FOR UNKNOWN INDICATION
  4. VALSARTAN [Concomitant]
     Indication: DRUG USE FOR UNKNOWN INDICATION
  5. DRUG USED IN DIABETES [Concomitant]
     Indication: DRUG USE FOR UNKNOWN INDICATION
  6. FUROSEMIDE [Concomitant]
     Indication: DRUG USE FOR UNKNOWN INDICATION

REACTIONS (5)
  - ACUTE RESPIRATORY DISTRESS SYNDROME [None]
  - BLOOD GLUCOSE INCREASED [None]
  - MALAISE [None]
  - NAUSEA [None]
  - TACHYCARDIA [None]
